FAERS Safety Report 21141662 (Version 1)
Quarter: 2022Q3

REPORT INFORMATION
  Report Type: Spontaneous
  Country: US (occurrence: None)
  Receive Date: 20220727
  Receipt Date: 20220727
  Transmission Date: 20221027
  Serious: No
  Sender: FDA-Public Use
  Company Number: None

PATIENT
  Age: 61 Year
  Sex: Female
  Weight: 50.4 kg

DRUGS (5)
  1. CITROMA [Suspect]
     Active Substance: MAGNESIUM CITRATE
     Indication: Colonoscopy
     Dosage: OTHER QUANTITY : 10 OUNCE(S);?FREQUENCY : DAILY;?
     Route: 048
     Dates: start: 20220628, end: 20220628
  2. ATORVASTATIN [Concomitant]
     Active Substance: ATORVASTATIN
  3. Ubiquinol CoQ10 [Concomitant]
  4. CALCIUM\VITAMIN D [Concomitant]
     Active Substance: CALCIUM\VITAMIN D
  5. ALLEGRA [Concomitant]
     Active Substance: FEXOFENADINE HYDROCHLORIDE

REACTIONS (6)
  - Diarrhoea [None]
  - Pain [None]
  - Fatigue [None]
  - Pyrexia [None]
  - Product contamination microbial [None]
  - Asthenia [None]

NARRATIVE: CASE EVENT DATE: 20220629
